FAERS Safety Report 12893538 (Version 1)
Quarter: 2016Q4

REPORT INFORMATION
  Report Type: Spontaneous
  Country: US (occurrence: US)
  Receive Date: 20161028
  Receipt Date: 20161028
  Transmission Date: 20170207
  Serious: Yes (Other)
  Sender: FDA-Public Use
  Company Number: None

PATIENT
  Age: 22 Year
  Sex: Female
  Weight: 68.95 kg

DRUGS (1)
  1. HEAD AND SHOULDERS [Suspect]
     Active Substance: PYRITHIONE ZINC
     Indication: DANDRUFF
     Dosage: 2 TABLESPOON (S) ONCE A DAY ON HAIR
     Route: 061
     Dates: start: 20160629, end: 20160729

REACTIONS (1)
  - Alopecia [None]

NARRATIVE: CASE EVENT DATE: 20160722
